FAERS Safety Report 9115559 (Version 2)
Quarter: 2013Q2

REPORT INFORMATION
  Report Type: Report from Study
  Country: JP (occurrence: JP)
  Receive Date: 20130225
  Receipt Date: 20130425
  Transmission Date: 20140414
  Serious: Yes (Death)
  Sender: FDA-Public Use
  Company Number: JP-PFIZER INC-2013064040

PATIENT
  Age: 82 Year
  Sex: Male
  Weight: 76.8 kg

DRUGS (12)
  1. TIGECYCLINE [Suspect]
     Indication: INFECTION
     Dosage: 100 MG, 1X/DAY
     Dates: start: 20130108, end: 20130108
  2. TIGECYCLINE [Suspect]
     Indication: ACINETOBACTER TEST POSITIVE
     Dosage: 50 MG, 2X/DAY
     Dates: start: 20130109, end: 20130202
  3. VANCOMYCIN [Concomitant]
     Dosage: UNK
  4. MEROPENEM [Concomitant]
     Dosage: UNK
  5. MICAFUNGIN [Concomitant]
     Dosage: UNK
     Dates: start: 20130105
  6. GASTER [Concomitant]
     Dosage: UNK
     Dates: start: 20130108
  7. FENTANYL [Concomitant]
     Dosage: UNK
     Dates: start: 20121226
  8. NORADRENALINE [Concomitant]
     Dosage: UNK
     Dates: start: 20121228
  9. BIOFERMIN [Concomitant]
     Dosage: UNK
     Route: 048
     Dates: start: 20130110
  10. MUCODYNE [Concomitant]
     Dosage: UNK
     Route: 048
     Dates: start: 20130116
  11. KAYTWO [Concomitant]
     Dosage: UNK
     Route: 048
     Dates: start: 20130131
  12. TOBRAMYCIN [Concomitant]
     Dosage: UNK
     Dates: start: 20130105

REACTIONS (2)
  - Pulmonary oedema [Fatal]
  - Superinfection [Unknown]
